FAERS Safety Report 8543017-8 (Version None)
Quarter: 2012Q3

REPORT INFORMATION
  Report Type: 
  Country: None (occurrence: None)
  Receive Date: 20120727
  Receipt Date: 20120717
  Transmission Date: 20120928
  Serious: Yes (Other)
  Sender: FDA-Public Use
  Company Number: CA-JNJFOC-20120709420

PATIENT
  Sex: Female
  Weight: 103.87 kg

DRUGS (13)
  1. BUDESONIDE [Concomitant]
     Indication: PROPHYLAXIS AGAINST BRONCHOSPASM
     Route: 055
  2. ACETAMINOPHEN [Concomitant]
     Indication: ANALGESIC THERAPY
     Dosage: 1-2 CAPLET EVERY 4-6 HOURS WITH A MAXIMUM OF 8 TABLETS PER DAY
     Route: 065
  3. GAVISCON [Concomitant]
     Indication: PROPHYLAXIS
     Route: 048
  4. ATORVASTATIN CALCIUM [Concomitant]
     Route: 048
  5. ASPIRIN [Concomitant]
     Indication: ANTICOAGULANT THERAPY
     Route: 065
  6. GATIFLOXACIN [Concomitant]
     Route: 047
  7. DEXAMETHASONE [Concomitant]
     Route: 047
  8. REMICADE [Suspect]
     Indication: CROHN'S DISEASE
     Route: 042
     Dates: start: 20111216
  9. IPRATROPIUM BROMIDE [Concomitant]
     Indication: PROPHYLAXIS AGAINST BRONCHOSPASM
     Route: 055
  10. PENTAZOCINE LACTATE [Concomitant]
     Route: 048
  11. 5-AMINOSALICYLIC ACID [Concomitant]
     Indication: ANALGESIC THERAPY
     Route: 065
  12. HUMALOG [Concomitant]
     Indication: DIABETES MELLITUS MANAGEMENT
     Dosage: 100U/ML
     Route: 065
  13. KETOROLAC TROMETHAMINE [Concomitant]
     Route: 047

REACTIONS (1)
  - CATARACT [None]
